FAERS Safety Report 17840240 (Version 1)
Quarter: 2020Q2

REPORT INFORMATION
  Report Type: Other
  Country: IN (occurrence: IN)
  Receive Date: 20200529
  Receipt Date: 20200529
  Transmission Date: 20200714
  Serious: Yes (Hospitalization, Other)
  Sender: FDA-Public Use
  Company Number: IN-AJANTA PHARMA USA INC.-2084309

PATIENT
  Age: 30 Month
  Sex: Male
  Weight: 13.18 kg

DRUGS (1)
  1. CLONIDINE (ANDA 209686) [Suspect]
     Active Substance: CLONIDINE
     Route: 048

REACTIONS (7)
  - Toxicity to various agents [Recovered/Resolved]
  - Hypotension [Recovered/Resolved]
  - Respiratory failure [Recovered/Resolved]
  - Bradycardia [Recovered/Resolved]
  - Accidental overdose [Recovered/Resolved]
  - Loss of consciousness [Recovered/Resolved]
  - Pneumonia aspiration [Recovered/Resolved]
